FAERS Safety Report 4977515-0 (Version None)
Quarter: 2006Q2

REPORT INFORMATION
  Report Type: 
  Country: None (occurrence: None)
  Receive Date: 20060420
  Receipt Date: 20060410
  Transmission Date: 20061013
  Serious: Yes (Hospitalization, Disabling, Other)
  Sender: FDA-Public Use
  Company Number: PHFR2006GB01398

PATIENT
  Age: 84 Year
  Sex: Male

DRUGS (7)
  1. DICLOFENAC SODIUM [Suspect]
     Route: 048
  2. ISOSORBIDE MONONITRATE [Concomitant]
     Route: 048
  3. SIMVASTATIN [Concomitant]
     Route: 048
  4. METOPROLOL TARTRATE [Concomitant]
     Route: 048
  5. FRUSEMIDE [Concomitant]
     Route: 048
  6. IPRATROPIUM BROMIDE [Concomitant]
  7. CLOPIDOGREL [Suspect]
     Dosage: 75 MG, QD

REACTIONS (3)
  - BLINDNESS [None]
  - OPERATIVE HAEMORRHAGE [None]
  - VITREOUS HAEMORRHAGE [None]
